FAERS Safety Report 7887521-4 (Version None)
Quarter: 2011Q4

REPORT INFORMATION
  Report Type: 
  Country: None (occurrence: None)
  Receive Date: 20111103
  Receipt Date: 20111021
  Transmission Date: 20120403
  Serious: Yes (Other)
  Sender: FDA-Public Use
  Company Number: BR-BIOGENIDEC-2009BI037616

PATIENT
  Age: 22 Year
  Sex: Female

DRUGS (2)
  1. AVONEX [Suspect]
     Indication: MULTIPLE SCLEROSIS
     Route: 030
     Dates: start: 20090123
  2. PONDERA [Concomitant]
     Indication: DEPRESSION

REACTIONS (13)
  - OCULAR HYPERAEMIA [None]
  - TREMOR [None]
  - PAIN [None]
  - NAUSEA [None]
  - HYPOTENSION [None]
  - INFLUENZA [None]
  - CHILLS [None]
  - PYREXIA [None]
  - NASOPHARYNGITIS [None]
  - HEADACHE [None]
  - PAIN IN EXTREMITY [None]
  - RHINALGIA [None]
  - INFLUENZA LIKE ILLNESS [None]
